FAERS Safety Report 19618106 (Version 2)
Quarter: 2021Q3

REPORT INFORMATION
  Report Type: Report from Study
  Country: US (occurrence: US)
  Receive Date: 20210728
  Receipt Date: 20210810
  Transmission Date: 20211014
  Serious: Yes (Hospitalization)
  Sender: FDA-Public Use
  Company Number: US-B.I. PHARMACEUTICALS,INC./RIDGEFIELD-2021-BI-110484

PATIENT
  Age: 74 Year
  Sex: Male

DRUGS (3)
  1. OFEV [Suspect]
     Active Substance: NINTEDANIB
     Indication: IDIOPATHIC PULMONARY FIBROSIS
     Dosage: OFEV DOSE 300MG DAILY
     Route: 048
     Dates: start: 20210606, end: 20210706
  2. OFEV [Suspect]
     Active Substance: NINTEDANIB
     Indication: CYSTIC FIBROSIS
  3. LASIX [Suspect]
     Active Substance: FUROSEMIDE
     Indication: PRODUCT USED FOR UNKNOWN INDICATION

REACTIONS (7)
  - Cardiac disorder [Unknown]
  - Weight fluctuation [Unknown]
  - Asthenia [Unknown]
  - Thrombosis [Unknown]
  - Abdominal pain upper [Recovered/Resolved]
  - Diarrhoea [Recovered/Resolved]
  - Dizziness [Unknown]

NARRATIVE: CASE EVENT DATE: 20210615
